FAERS Safety Report 6584732-5 (Version None)
Quarter: 2010Q1

REPORT INFORMATION
  Report Type: 
  Country: None (occurrence: None)
  Receive Date: 20100217
  Receipt Date: 20100208
  Transmission Date: 20100710
  Serious: Yes (Other)
  Sender: FDA-Public Use
  Company Number: PHHY2010JP07096

PATIENT
  Age: 67 Year
  Sex: Male
  Weight: 54 kg

DRUGS (17)
  1. TEGRETOL [Suspect]
     Indication: PSYCHIATRIC SYMPTOM
     Dosage: 300 MG, DAILY
     Route: 048
     Dates: start: 20090401
  2. TEGRETOL [Suspect]
     Dosage: 600 MG, DAILY
     Route: 048
     Dates: start: 20091027
  3. TEGRETOL [Suspect]
     Dosage: 750 MG, DAILY
     Route: 048
     Dates: start: 20091105, end: 20091124
  4. PANTOSIN [Concomitant]
     Dosage: 600 MG, UNK
     Route: 048
  5. MIYA-BM [Concomitant]
     Dosage: 1.5 G, UNK
     Route: 048
  6. GASMOTIN [Concomitant]
     Dosage: 3 DF, UNK
     Route: 048
  7. STROCAIN [Concomitant]
     Dosage: 3 DF, UNK
     Route: 048
  8. PRIMPERAN TAB [Concomitant]
     Dosage: 6 DF, UNK
     Route: 048
  9. LAC B [Concomitant]
     Dosage: 3 G, UNK
     Route: 048
  10. MAGNESIUM OXIDE HEAVY [Concomitant]
     Dosage: 0.9 G, UNK
     Route: 048
  11. MARZULENE S [Concomitant]
     Dosage: 2 G, UNK
     Route: 048
  12. GASTER [Concomitant]
     Dosage: 0.4 G, UNK
     Route: 048
  13. CRAVIT [Concomitant]
     Dosage: 500 MG, UNK
     Route: 048
  14. SEROQUEL [Concomitant]
     Dosage: 500 MG, UNK
     Route: 048
  15. MYSLEE [Concomitant]
     Dosage: 1 DF, UNK
     Route: 048
  16. SILECE [Concomitant]
     Dosage: 1 DF, UNK
     Route: 048
  17. LAXOBERON [Concomitant]
     Dosage: 15 DF, UNK
     Route: 048

REACTIONS (5)
  - AGITATION [None]
  - LIVER DISORDER [None]
  - REFUSAL OF TREATMENT BY PATIENT [None]
  - STRESS [None]
  - SURGERY [None]
